FAERS Safety Report 11348518 (Version 1)
Quarter: 2015Q3

REPORT INFORMATION
  Report Type: Report from Study
  Country: US (occurrence: US)
  Receive Date: 20150806
  Receipt Date: 20150806
  Transmission Date: 20151125
  Serious: Yes (Hospitalization, Other)
  Sender: FDA-Public Use
  Company Number: US-ABBVIE-15P-163-1435935-00

PATIENT
  Age: 60 Year
  Sex: Male
  Weight: 79 kg

DRUGS (2)
  1. VIEKIRA PAK [Suspect]
     Active Substance: DASABUVIR\OMBITASVIR\PARITAPREVIR\RITONAVIR
     Indication: HEPATITIS C
     Route: 048
  2. VIEKIRA PAK [Suspect]
     Active Substance: DASABUVIR\OMBITASVIR\PARITAPREVIR\RITONAVIR
     Dosage: 2 PINK TABS WITH 1 BEIGE TAB IN AM AND 1 BEIGE TAB QHS
     Route: 048
     Dates: start: 201503

REACTIONS (3)
  - Cardiac infection [Not Recovered/Not Resolved]
  - Ammonia increased [Unknown]
  - Renal disorder [Not Recovered/Not Resolved]

NARRATIVE: CASE EVENT DATE: 20150720
